FAERS Safety Report 7688719-0 (Version None)
Quarter: 2011Q3

REPORT INFORMATION
  Report Type: 
  Country: None (occurrence: None)
  Receive Date: 20110817
  Receipt Date: 20110810
  Transmission Date: 20111222
  Serious: Yes (Hospitalization)
  Sender: FDA-Public Use
  Company Number: FR-GLAXOSMITHKLINE-B0738596A

PATIENT
  Age: 24 Year
  Sex: Female

DRUGS (6)
  1. PAROXETINE HCL [Concomitant]
     Route: 065
  2. LEPTICUR [Concomitant]
     Route: 065
  3. ACETAMINOPHEN [Concomitant]
     Route: 065
  4. ACETAMINOPHEN AND TRAMADOL HCL [Concomitant]
     Route: 065
  5. LAMICTAL [Suspect]
     Indication: EPILEPSY
     Route: 048
  6. SEMAP [Concomitant]
     Route: 065

REACTIONS (7)
  - ERYTHEMA [None]
  - LYMPHADENOPATHY [None]
  - HEPATIC FUNCTION ABNORMAL [None]
  - DRUG RASH WITH EOSINOPHILIA AND SYSTEMIC SYMPTOMS [None]
  - SKIN DISORDER [None]
  - EOSINOPHILIA [None]
  - FACE OEDEMA [None]
